FAERS Safety Report 5290304-5 (Version None)
Quarter: 2007Q2

REPORT INFORMATION
  Report Type: 
  Country: None (occurrence: None)
  Receive Date: 20070409
  Receipt Date: 20070328
  Transmission Date: 20071010
  Serious: Yes (Other)
  Sender: FDA-Public Use
  Company Number: IT-ELI_LILLY_AND_COMPANY-IT200702003958

PATIENT
  Age: 73 Year
  Sex: Male

DRUGS (1)
  1. ALIMTA [Suspect]
     Indication: LUNG SQUAMOUS CELL CARCINOMA STAGE II
     Dosage: 500 MG, OTHER
     Route: 042
     Dates: start: 20070126, end: 20070126

REACTIONS (1)
  - URTICARIA [None]
